FAERS Safety Report 9970917 (Version 1)
Quarter: 2014Q1

REPORT INFORMATION
  Report Type: Report from Study
  Country: US (occurrence: US)
  Receive Date: 20140306
  Receipt Date: 20140306
  Transmission Date: 20141002
  Serious: No
  Sender: FDA-Public Use
  Company Number: US-ABBVIE-13P-163-1149285-00

PATIENT
  Age: 87 Year
  Sex: Male

DRUGS (5)
  1. HUMIRA [Suspect]
     Indication: PSORIASIS
     Dates: start: 20130616
  2. PRILOSEC [Concomitant]
     Indication: GASTROOESOPHAGEAL REFLUX DISEASE
  3. VITAMIN B COMPLEX/B12 [Concomitant]
     Indication: PRODUCT USED FOR UNKNOWN INDICATION
  4. MEDICATION (NAME NOT AVAILABLE) [Concomitant]
     Indication: BLOOD PRESSURE
  5. MEDICATION (NAME NOT AVAILABLE) [Concomitant]
     Indication: BLOOD CHOLESTEROL INCREASED

REACTIONS (1)
  - Pruritus [Recovering/Resolving]
